FAERS Safety Report 8926782 (Version 1)
Quarter: 2012Q4

REPORT INFORMATION
  Report Type: 
  Country: IT (occurrence: IT)
  Receive Date: 20121127
  Receipt Date: 20121127
  Transmission Date: 20130627
  Serious: Yes (Other)
  Sender: FDA-Public Use
  Company Number: IT-PFIZER INC-2012286244

PATIENT
  Age: 64 Year
  Sex: Male

DRUGS (2)
  1. CISPLATINO [Suspect]
     Indication: ADENOCARCINOMA LUNG
     Dosage: 124 mg, cyclic
     Route: 042
     Dates: start: 20121016, end: 20121016
  2. ALIMTA [Concomitant]
     Indication: ADENOCARCINOMA LUNG
     Dosage: 885 mg, UNK
     Route: 042
     Dates: start: 20121016, end: 20121016

REACTIONS (4)
  - Bronchostenosis [Recovered/Resolved]
  - Dyspnoea [Recovered/Resolved]
  - Cyanosis [Recovered/Resolved]
  - Dyspnoea at rest [None]
